FAERS Safety Report 17917241 (Version 1)
Quarter: 2020Q2

REPORT INFORMATION
  Report Type: Spontaneous
  Country: DE (occurrence: DE)
  Receive Date: 20200619
  Receipt Date: 20200619
  Transmission Date: 20200714
  Serious: Yes (Other)
  Sender: FDA-Public Use
  Company Number: DE-PFIZER INC-2020238797

PATIENT
  Sex: Female

DRUGS (2)
  1. IBRANCE [Suspect]
     Active Substance: PALBOCICLIB
     Dosage: UNK
     Dates: start: 201904, end: 20200615
  2. GEMCITABINE. [Concomitant]
     Active Substance: GEMCITABINE

REACTIONS (2)
  - Dyspnoea [Unknown]
  - Pulmonary toxicity [Unknown]
